FAERS Safety Report 10236462 (Version 1)
Quarter: 2014Q2

REPORT INFORMATION
  Report Type: Spontaneous
  Country: US (occurrence: None)
  Receive Date: 20140612
  Receipt Date: 20140612
  Transmission Date: 20141212
  Serious: Yes (Other)
  Sender: FDA-Public Use
  Company Number: None

PATIENT
  Age: 7 Year
  Sex: Female

DRUGS (2)
  1. LAMICTAL [Suspect]
     Indication: EPILEPSY
     Dosage: 3 BID PO
     Route: 048
     Dates: start: 2009
  2. LAMICTAL [Suspect]
     Dosage: 3 BID PO
     Route: 048
     Dates: start: 2009

REACTIONS (1)
  - Product substitution issue [None]
